FAERS Safety Report 5533928-X (Version None)
Quarter: 2007Q4

REPORT INFORMATION
  Report Type: 
  Country: None (occurrence: None)
  Receive Date: 20071129
  Receipt Date: 20071107
  Transmission Date: 20080405
  Serious: No
  Sender: FDA-Public Use
  Company Number: 2007EU002351

PATIENT
  Sex: Male

DRUGS (1)
  1. PROGRAF [Suspect]
     Indication: LIVER TRANSPLANT
     Dosage: 3.5 MG, BID, ORAL
     Route: 048
     Dates: end: 20070923

REACTIONS (2)
  - DYSARTHRIA [None]
  - TARDIVE DYSKINESIA [None]
